FAERS Safety Report 12978305 (Version 6)
Quarter: 2017Q2

REPORT INFORMATION
  Report Type: Report from Study
  Country: US (occurrence: US)
  Receive Date: 20161128
  Receipt Date: 20170420
  Transmission Date: 20170830
  Serious: Yes (Hospitalization, Other)
  Sender: FDA-Public Use
  Company Number: US-BAYER-2016-210645

PATIENT
  Age: 55 Year
  Sex: Male
  Weight: 64.22 kg

DRUGS (6)
  1. ADEMPAS [Suspect]
     Active Substance: RIOCIGUAT
     Indication: PULMONARY ARTERIAL HYPERTENSION
     Dosage: 2.5 MG, TID
     Route: 048
  2. ADEMPAS [Suspect]
     Active Substance: RIOCIGUAT
     Indication: PULMONARY ARTERIAL HYPERTENSION
     Dosage: 2.5 MG, TID
     Route: 048
  3. OPSUMIT [Concomitant]
     Active Substance: MACITENTAN
     Dosage: UNK
  4. ADEMPAS [Suspect]
     Active Substance: RIOCIGUAT
     Indication: PULMONARY ARTERIAL HYPERTENSION
     Dosage: UNK
     Dates: start: 20151231
  5. REMODULIN [Suspect]
     Active Substance: TREPROSTINIL
     Dosage: UNK
     Route: 058
  6. TYVASO [Suspect]
     Active Substance: TREPROSTINIL
     Dosage: UNK

REACTIONS (17)
  - Syncope [Unknown]
  - Exercise tolerance decreased [Unknown]
  - Nausea [Unknown]
  - Infusion site pain [Unknown]
  - Groin pain [Unknown]
  - Fluid retention [Unknown]
  - Fatigue [Unknown]
  - Injection site infection [Unknown]
  - Fall [Unknown]
  - Cardiac septal defect [None]
  - Dyspnoea exertional [Unknown]
  - Headache [Unknown]
  - Cellulitis [Unknown]
  - Respiratory rate increased [Unknown]
  - Cough [Unknown]
  - Oedema peripheral [Unknown]
  - Oedema [Unknown]

NARRATIVE: CASE EVENT DATE: 201611
